FAERS Safety Report 8966925 (Version 1)
Quarter: 2012Q4

REPORT INFORMATION
  Report Type: 
  Country: FR (occurrence: FR)
  Receive Date: 20121217
  Receipt Date: 20121217
  Transmission Date: 20130627
  Serious: Yes (Life-Threatening, Other)
  Sender: FDA-Public Use
  Company Number: PHHY2012FR115691

PATIENT
  Age: 1 Year
  Sex: Female

DRUGS (1)
  1. SANDIMMUN OPTORAL [Suspect]
     Route: 042
     Dates: start: 20120622, end: 20120704

REACTIONS (3)
  - Thrombotic thrombocytopenic purpura [Recovering/Resolving]
  - Bone marrow failure [Unknown]
  - Blood creatinine increased [Unknown]
